FAERS Safety Report 24658816 (Version 2)
Quarter: 2024Q4

REPORT INFORMATION
  Report Type: Spontaneous
  Country: US (occurrence: US)
  Receive Date: 20241125
  Receipt Date: 20241227
  Transmission Date: 20250114
  Serious: Yes (Other)
  Sender: BAYER HEALTHCARE PHARMACEUTICALS INC.
  Company Number: US-BAYER-2024A163280

PATIENT
  Age: 61 Year
  Sex: Male

DRUGS (2)
  1. KOVALTRY [Suspect]
     Active Substance: ANTIHEMOPHILIC FACTOR, HUMAN RECOMBINANT
     Indication: Haemorrhage
     Dosage: INFUSE 4000 UNITS (+/-10%) PRIOR TO
  2. KOVALTRY [Suspect]
     Active Substance: ANTIHEMOPHILIC FACTOR, HUMAN RECOMBINANT
     Indication: Haemorrhage
     Dosage: 575 UNITS/3342 UNITS/ 4000 UNITS, INFUSION

REACTIONS (4)
  - Epistaxis [Not Recovered/Not Resolved]
  - Cautery to nose [None]
  - Epistaxis [None]
  - Cautery to nose [None]

NARRATIVE: CASE EVENT DATE: 20241112
